FAERS Safety Report 9557570 (Version 1)
Quarter: 2013Q3

REPORT INFORMATION
  Report Type: Report from Study
  Country: ES (occurrence: ES)
  Receive Date: 20130926
  Receipt Date: 20130926
  Transmission Date: 20140515
  Serious: Yes (Hospitalization)
  Sender: FDA-Public Use
  Company Number: ES-GLAXOSMITHKLINE-A0736559A

PATIENT
  Age: 31 Year
  Sex: Female
  Weight: 82 kg

DRUGS (10)
  1. LAPATINIB [Suspect]
     Indication: SQUAMOUS CELL CARCINOMA OF HEAD AND NECK
     Dosage: 1500MG PER DAY
     Route: 048
     Dates: start: 20080228
  2. CISPLATIN [Suspect]
     Indication: SQUAMOUS CELL CARCINOMA OF HEAD AND NECK
     Dosage: 100MGM2 CYCLIC
     Route: 042
     Dates: start: 20080610
  3. RADIOTHERAPY [Suspect]
     Indication: SQUAMOUS CELL CARCINOMA OF HEAD AND NECK
     Route: 061
  4. IBUPROFEN [Concomitant]
     Indication: PAIN
     Dosage: 600MG THREE TIMES PER DAY
     Route: 048
     Dates: start: 20080602, end: 20080702
  5. NOLOTIL [Concomitant]
     Indication: PAIN
     Dosage: 1CAP THREE TIMES PER DAY
     Route: 048
     Dates: start: 20080616, end: 20080702
  6. OMEPRAZOLE [Concomitant]
     Indication: PROPHYLAXIS
     Dosage: 20MG PER DAY
     Route: 048
     Dates: start: 20080602, end: 20080702
  7. LIDOCAINA [Concomitant]
     Dosage: 100ML THREE TIMES PER DAY
     Route: 048
     Dates: start: 20080705, end: 20080716
  8. MORPHINE [Concomitant]
     Indication: PAIN
     Dosage: 3MG SIX TIMES PER DAY
     Route: 058
     Dates: start: 20080705, end: 20080707
  9. MORPHINE [Concomitant]
     Indication: PAIN
     Dosage: 4MG SIX TIMES PER DAY
     Route: 058
     Dates: start: 20080709, end: 20080714
  10. ESOMEPRAZOLE [Concomitant]
     Dosage: 20MG PER DAY
     Route: 045
     Dates: start: 20080712, end: 20080716

REACTIONS (4)
  - Mucosal inflammation [Recovered/Resolved]
  - Dysphagia [Unknown]
  - Odynophagia [Unknown]
  - Candida infection [Unknown]
